FAERS Safety Report 7128820-3 (Version None)
Quarter: 2010Q4

REPORT INFORMATION
  Report Type: 
  Country: None (occurrence: None)
  Receive Date: 20101130
  Receipt Date: 20101124
  Transmission Date: 20110411
  Serious: Yes (Death)
  Sender: FDA-Public Use
  Company Number: JP-ASTRAZENECA-2010SE55845

PATIENT
  Age: 21 Year
  Sex: Male

DRUGS (2)
  1. XYLOCAINE [Suspect]
     Dosage: DOSE UNKNOWN
     Route: 042
     Dates: start: 20081201, end: 20081201
  2. DIPRIVAN [Suspect]
     Dosage: DOSE UNKNOWN
     Route: 042
     Dates: start: 20081201, end: 20081201

REACTIONS (2)
  - DISSEMINATED INTRAVASCULAR COAGULATION [None]
  - HYPERTHERMIA MALIGNANT [None]
